FAERS Safety Report 19174075 (Version 3)
Quarter: 2021Q4

REPORT INFORMATION
  Report Type: Spontaneous
  Country: JP (occurrence: JP)
  Receive Date: 20210423
  Receipt Date: 20211104
  Transmission Date: 20220303
  Serious: Yes (Hospitalization, Other)
  Sender: FDA-Public Use
  Company Number: JP-TEIJIN-202101180_FET_P_1

PATIENT
  Age: 69 Year
  Sex: Male
  Weight: 91.8 kg

DRUGS (12)
  1. FEBUXOSTAT [Suspect]
     Active Substance: FEBUXOSTAT
     Indication: Hyperuricaemia
     Dosage: 10 MILLIGRAM, QD
     Route: 048
     Dates: end: 20200526
  2. LEVOFLOXACIN [Suspect]
     Active Substance: LEVOFLOXACIN
     Indication: Urinary tract infection
     Dosage: 500 MILLIGRAM, QD
     Route: 048
     Dates: start: 20200524, end: 20200524
  3. MONTELUKAST SODIUM [Concomitant]
     Active Substance: MONTELUKAST SODIUM
     Dosage: 10 MILLIGRAM, QD
     Route: 048
  4. EBASTINE [Concomitant]
     Active Substance: EBASTINE
     Dosage: 10 MILLIGRAM, QD
     Route: 048
  5. ALPRAZOLAM [Concomitant]
     Active Substance: ALPRAZOLAM
     Dosage: 0.4 MILLIGRAM, QD
     Route: 048
  6. ALFACALCIDOL [Concomitant]
     Active Substance: ALFACALCIDOL
     Dosage: 1 MICROGRAM, QD
     Route: 048
  7. BISOPROLOL FUMARATE [Concomitant]
     Active Substance: BISOPROLOL FUMARATE
     Dosage: 0.625 MILLIGRAM, QD
     Route: 048
  8. CALTAN [Concomitant]
     Active Substance: CALCIUM CARBONATE
     Dosage: 500 MILLIGRAM, TID
     Route: 048
  9. FUROSEMIDE [Concomitant]
     Active Substance: FUROSEMIDE
     Dosage: 40 MILLIGRAM, BID
     Route: 048
  10. ASPIRIN\CLOPIDOGREL BISULFATE [Concomitant]
     Active Substance: ASPIRIN\CLOPIDOGREL BISULFATE
     Dosage: 1 DOSAGE FORM, QD
     Route: 048
  11. LANSOPRAZOLE [Concomitant]
     Active Substance: LANSOPRAZOLE
     Dosage: 15 MILLIGRAM, QD
     Route: 048
  12. ATORVASTATIN [Concomitant]
     Active Substance: ATORVASTATIN
     Dosage: 10 MILLIGRAM, BID
     Route: 048

REACTIONS (1)
  - Erythema multiforme [Recovering/Resolving]

NARRATIVE: CASE EVENT DATE: 20200525
